FAERS Safety Report 13365150 (Version 12)
Quarter: 2023Q4

REPORT INFORMATION
  Report Type: Report from Study
  Country: JP (occurrence: JP)
  Receive Date: 20170323
  Receipt Date: 20231214
  Transmission Date: 20240110
  Serious: Yes (Hospitalization, Other)
  Sender: FDA-Public Use
  Company Number: JP-MH-2012S1015004

PATIENT
  Age: 33 Year
  Sex: Male
  Weight: 35.9 kg

DRUGS (60)
  1. CYSTEAMINE [Suspect]
     Active Substance: CYSTEAMINE
     Indication: Cystinosis
     Dosage: 450 MILLIGRAM, QID
     Route: 048
     Dates: start: 20120707, end: 20120717
  2. CYSTEAMINE [Suspect]
     Active Substance: CYSTEAMINE
     Dosage: 200 MILLIGRAM, QID
     Route: 048
     Dates: start: 20120919
  3. CYSTEAMINE [Suspect]
     Active Substance: CYSTEAMINE
     Dosage: 200 MILLIGRAM, QID
     Route: 048
     Dates: start: 20120724
  4. CYSTEAMINE [Suspect]
     Active Substance: CYSTEAMINE
     Dosage: 100 MILLIGRAM, QID
     Route: 048
     Dates: start: 20121113
  5. CYSTEAMINE [Suspect]
     Active Substance: CYSTEAMINE
     Dosage: 200 MG, QID
     Route: 048
     Dates: start: 20150306, end: 20171212
  6. CYSTEAMINE [Suspect]
     Active Substance: CYSTEAMINE
     Dosage: 250 MG, QID
     Route: 048
     Dates: start: 20171213, end: 20190618
  7. CYSTEAMINE [Suspect]
     Active Substance: CYSTEAMINE
     Dosage: 300 MG, QID
     Route: 048
     Dates: start: 20190626, end: 20200324
  8. CYSTEAMINE [Suspect]
     Active Substance: CYSTEAMINE
     Dosage: 350 MG, QID
     Route: 048
     Dates: start: 20200325, end: 20200922
  9. CYSTEAMINE [Suspect]
     Active Substance: CYSTEAMINE
     Dosage: 450 MG, QID
     Route: 048
     Dates: start: 20200923
  10. METHYLCOBALAMIN [Suspect]
     Active Substance: METHYLCOBALAMIN
     Indication: Product used for unknown indication
     Dosage: UNK MILLIGRAM
     Route: 048
  11. METHYLCOBALAMIN [Suspect]
     Active Substance: METHYLCOBALAMIN
     Dosage: 3 MILLIGRAM
     Route: 048
  12. ADETPHOS [Suspect]
     Active Substance: ADENOSINE TRIPHOSPHATE
     Indication: Product used for unknown indication
     Dosage: UNK
     Route: 048
  13. NEORAL [Concomitant]
     Active Substance: CYCLOSPORINE
     Indication: Renal transplant
     Dosage: 50 MG,BID
     Route: 048
     Dates: start: 2000
  14. MIZORIBINE [Concomitant]
     Active Substance: MIZORIBINE
     Indication: Renal transplant
     Dosage: 150 MG,QD
     Route: 048
     Dates: start: 199404
  15. PREDONINE [Concomitant]
     Active Substance: PREDNISOLONE
     Indication: Renal transplant
     Dosage: 10 MILLIGRAM, QD
     Route: 048
     Dates: start: 199404
  16. PREDONINE [Concomitant]
     Active Substance: PREDNISOLONE
     Dosage: 5 MG, UNK
     Route: 048
  17. FEBUXOSTAT [Concomitant]
     Active Substance: FEBUXOSTAT
     Indication: Chronic kidney disease
     Dosage: 10 MILLIGRAM, QD
     Route: 048
     Dates: start: 2001
  18. FEBUXOSTAT [Concomitant]
     Active Substance: FEBUXOSTAT
     Dosage: 10 MILLIGRAM, QD
     Route: 048
  19. NOVOLIN R [Concomitant]
     Active Substance: INSULIN HUMAN
     Indication: Diabetes mellitus
     Dosage: 20 DOSAGE FORM, QD
     Route: 058
     Dates: start: 2007
  20. NOVOLIN R [Concomitant]
     Active Substance: INSULIN HUMAN
     Dosage: APPROPRIATELY INCREASE OR DECREASE ACCORDING TO BLOOD SUGAR LEVEL
     Route: 058
     Dates: end: 201902
  21. LANTUS [Concomitant]
     Active Substance: INSULIN GLARGINE
     Indication: Diabetes mellitus
     Dosage: 2 DF, HS
     Route: 058
     Dates: start: 2007
  22. LANTUS [Concomitant]
     Active Substance: INSULIN GLARGINE
     Dosage: ??
     Route: 058
  23. FERROUS CITRATE\SODIUM [Concomitant]
     Active Substance: FERROUS CITRATE\SODIUM
     Indication: Chronic kidney disease
     Dosage: 50 MG,QD
     Route: 048
     Dates: start: 2007
  24. CALBLOCK [Concomitant]
     Active Substance: AZELNIDIPINE
     Indication: Chronic kidney disease
     Dosage: 16 MG,QD
     Route: 048
     Dates: start: 201204
  25. DIOVAN [Concomitant]
     Active Substance: VALSARTAN
     Indication: Chronic kidney disease
     Dosage: 40 MG,QD
     Route: 048
     Dates: start: 2006
  26. MILLISROL [Concomitant]
     Indication: Chronic kidney disease
     Dosage: 5 MILLIGRAM, BID
     Route: 062
     Dates: start: 2000
  27. MILLISROL [Concomitant]
     Dosage: 5 MILLIGRAM, UNK
  28. ALFACALCIDOL [Concomitant]
     Active Substance: ALFACALCIDOL
     Indication: Chronic kidney disease
     Dosage: 0.25 MICROGRAM, QD
     Route: 048
     Dates: start: 2010
  29. ZETIA [Concomitant]
     Active Substance: EZETIMIBE
     Indication: Chronic kidney disease
     Dosage: 10 MG,QD
     Route: 048
     Dates: start: 2010
  30. LEVOTHYROXINE SODIUM [Concomitant]
     Active Substance: LEVOTHYROXINE SODIUM
     Indication: Chronic kidney disease
     Dosage: 75 MICROGRAM, QD
     Route: 048
  31. LEVOTHYROXINE SODIUM [Concomitant]
     Active Substance: LEVOTHYROXINE SODIUM
     Dosage: 75 ?G, UNK
     Route: 048
     Dates: start: 20150710, end: 20170202
  32. LEVOTHYROXINE SODIUM [Concomitant]
     Active Substance: LEVOTHYROXINE SODIUM
     Dosage: 75 ?G, UNK
     Route: 048
     Dates: start: 20170208
  33. LEVOTHYROXINE SODIUM [Concomitant]
     Active Substance: LEVOTHYROXINE SODIUM
     Dosage: 100 ?G, UNK
     Route: 048
     Dates: start: 20170208, end: 20171010
  34. LEVOTHYROXINE SODIUM [Concomitant]
     Active Substance: LEVOTHYROXINE SODIUM
     Dosage: 75 ?G, UNK
     Route: 048
     Dates: start: 20171011, end: 20180220
  35. LEVOTHYROXINE SODIUM [Concomitant]
     Active Substance: LEVOTHYROXINE SODIUM
     Dosage: 62.5 ?G, UNK
     Route: 048
     Dates: start: 20180221, end: 20180424
  36. LEVOTHYROXINE SODIUM [Concomitant]
     Active Substance: LEVOTHYROXINE SODIUM
     Dosage: 100 MICROGRAM
     Route: 048
     Dates: start: 20180425
  37. ISOSORBIDE DINITRATE [Concomitant]
     Active Substance: ISOSORBIDE DINITRATE
     Indication: Product used for unknown indication
     Dosage: 40 MG, UNK
     Route: 062
  38. MILLIS [Concomitant]
     Indication: Product used for unknown indication
     Dosage: 5 MG, UNK
     Route: 062
  39. MINODRONIC ACID [Concomitant]
     Active Substance: MINODRONIC ACID
     Indication: Product used for unknown indication
     Dosage: 50 MG, UNK
     Route: 048
  40. ALFAROL [Concomitant]
     Active Substance: ALFACALCIDOL
     Indication: Product used for unknown indication
     Dosage: 0.25 ?G, UNK
     Route: 048
  41. FERRIC CITRATE ANHYDROUS [Concomitant]
     Active Substance: FERRIC CITRATE ANHYDROUS
     Indication: Product used for unknown indication
     Dosage: 750 MG, UNK
     Route: 048
     Dates: start: 20160105
  42. FERRIC CITRATE ANHYDROUS [Concomitant]
     Active Substance: FERRIC CITRATE ANHYDROUS
     Dosage: 750 MILLIGRAM, QD
     Route: 048
  43. NIFEDIPINE [Concomitant]
     Active Substance: NIFEDIPINE
     Indication: Product used for unknown indication
     Dosage: 20 MG, UNK
     Route: 048
  44. NIFEDIPINE [Concomitant]
     Active Substance: NIFEDIPINE
     Dosage: 10 MILLIGRAM, QD
     Route: 048
  45. ZOLPIDEM TARTRATE [Concomitant]
     Active Substance: ZOLPIDEM TARTRATE
     Indication: Product used for unknown indication
     Dosage: 10 MILLIGRAM, QD
     Route: 048
  46. REBAMIPIDE [Concomitant]
     Active Substance: REBAMIPIDE
     Indication: Product used for unknown indication
     Dosage: UNK
     Route: 047
     Dates: start: 20161214
  47. MOXIFLOXACIN HYDROCHLORIDE [Concomitant]
     Active Substance: MOXIFLOXACIN HYDROCHLORIDE\MOXIFLOXACIN HYDROCHLORIDE MONOHYDRATE
     Indication: Product used for unknown indication
     Dosage: UNK
     Route: 047
     Dates: start: 20161214, end: 20200330
  48. FLUOROMETHOLONE [Concomitant]
     Active Substance: FLUOROMETHOLONE
     Indication: Product used for unknown indication
     Dosage: UNK
     Route: 047
     Dates: start: 20161214
  49. MIYA-BM [Concomitant]
     Active Substance: CLOSTRIDIUM BUTYRICUM SPORES STRAIN M-55
     Indication: Product used for unknown indication
     Dosage: 3 GRAM
     Route: 048
     Dates: start: 20200122, end: 20200623
  50. MIYA-BM [Concomitant]
     Active Substance: CLOSTRIDIUM BUTYRICUM SPORES STRAIN M-55
     Dosage: 6 GRAM
     Route: 048
     Dates: start: 20200624
  51. BILASTINE [Concomitant]
     Active Substance: BILASTINE
     Indication: Product used for unknown indication
     Dosage: 20 MILLIGRAM
     Route: 048
  52. TRANSAMIN [Concomitant]
     Active Substance: TRANEXAMIC ACID
     Indication: Product used for unknown indication
     Dosage: 750 MILLIGRAM
     Route: 048
  53. GATIFLOXACIN [Concomitant]
     Active Substance: GATIFLOXACIN
     Indication: Product used for unknown indication
     Dosage: UNK
     Route: 047
     Dates: start: 20200401
  54. CALCIUM LACTATE [Concomitant]
     Active Substance: CALCIUM LACTATE
     Indication: Product used for unknown indication
     Dosage: 2 GRAM, QD
     Route: 048
  55. CALTAN [Concomitant]
     Active Substance: CALCIUM CARBONATE
     Indication: Product used for unknown indication
     Dosage: 1500 MILLIGRAM
     Route: 048
  56. ERYTHROCIN LACTOBIONATE [Concomitant]
     Active Substance: ERYTHROMYCIN LACTOBIONATE
     Indication: Product used for unknown indication
     Dosage: UNK
     Route: 047
  57. FOSRENOL [Concomitant]
     Active Substance: LANTHANUM CARBONATE
     Indication: Product used for unknown indication
     Dosage: 750 MILLIGRAM
     Route: 048
  58. PREDNISOLONE [Concomitant]
     Active Substance: PREDNISOLONE
     Indication: Product used for unknown indication
     Dosage: 6 MILLIGRAM
     Route: 048
  59. FOLIC ACID [Concomitant]
     Active Substance: FOLIC ACID
     Indication: Product used for unknown indication
     Dosage: 30 MILLIGRAM
     Route: 048
  60. AUGMENTIN [Concomitant]
     Active Substance: AMOXICILLIN\CLAVULANATE POTASSIUM
     Indication: Product used for unknown indication
     Dosage: 375 MILLIGRAM, QD
     Route: 048
     Dates: start: 20230410, end: 20230414

REACTIONS (11)
  - Decreased appetite [Recovered/Resolved]
  - Fracture [Not Recovered/Not Resolved]
  - Fall [Unknown]
  - Keratitis bacterial [Not Recovered/Not Resolved]
  - Shunt occlusion [Recovered/Resolved]
  - Shunt occlusion [Recovered/Resolved]
  - Pseudomembranous colitis [Recovering/Resolving]
  - Colonic fistula [Recovering/Resolving]
  - Enterocolitis [Recovered/Resolved]
  - Hyperphosphataemia [Recovered/Resolved]
  - Transaminases increased [Recovered/Resolved]

NARRATIVE: CASE EVENT DATE: 20120701
